FAERS Safety Report 4661369-6 (Version None)
Quarter: 2005Q2

REPORT INFORMATION
  Report Type: 
  Country: None (occurrence: None)
  Receive Date: 20050427
  Receipt Date: 20050315
  Transmission Date: 20051028
  Serious: No
  Sender: FDA-Public Use
  Company Number: 212745

PATIENT
  Age: 45 Year
  Sex: Female

DRUGS (1)
  1. XOLAIR [Suspect]
     Indication: DRUG USE FOR UNKNOWN INDICATION

REACTIONS (1)
  - MENSTRUAL DISORDER [None]
